FAERS Safety Report 8307597-X (Version None)
Quarter: 2012Q2

REPORT INFORMATION
  Report Type: 
  Country: None (occurrence: None)
  Receive Date: 20120424
  Receipt Date: 20120417
  Transmission Date: 20120825
  Serious: Yes (Other)
  Sender: FDA-Public Use
  Company Number: US-JNJFOC-20120211731

PATIENT
  Sex: Female
  Weight: 80.29 kg

DRUGS (8)
  1. XARELTO [Suspect]
     Route: 048
     Dates: start: 20120208, end: 20120212
  2. DIOVAN HCT [Concomitant]
     Indication: HYPERTENSION
     Route: 048
  3. ETODOLAC [Concomitant]
     Route: 048
  4. ACTOS [Concomitant]
     Indication: TYPE 2 DIABETES MELLITUS
     Route: 048
  5. HYDROCHLOROTHIAZIDE [Concomitant]
     Indication: HYPERTENSION
     Route: 048
  6. GLUCOVANCE [Concomitant]
     Indication: TYPE 2 DIABETES MELLITUS
     Route: 048
  7. XARELTO [Suspect]
     Indication: THROMBOSIS PROPHYLAXIS
     Route: 048
  8. XARELTO [Suspect]
     Dosage: X 4D
     Route: 048
     Dates: start: 20120214, end: 20120217

REACTIONS (2)
  - COAGULOPATHY [None]
  - INCISION SITE HAEMORRHAGE [None]
